FAERS Safety Report 9294643 (Version 1)
Quarter: 2013Q1

REPORT INFORMATION
  Report Type: Spontaneous
  Country: US (occurrence: None)
  Receive Date: 20121227
  Receipt Date: 20121227
  Transmission Date: 20140127
  Serious: Yes (Hospitalization)
  Sender: FDA-Public Use
  Company Number: PHEH2011US010967

PATIENT
  Age: 75 Year
  Sex: Male

DRUGS (2)
  1. EXJADE [Suspect]
     Route: 048
     Dates: start: 20111130
  2. CHEMOTHERAPEUTICS (NO INGREDIENTS/SUBSTANCES) [Concomitant]

REACTIONS (5)
  - White blood cell count decreased [None]
  - Platelet count decreased [None]
  - Asthenia [None]
  - Dyspnoea [None]
  - Nausea [None]
